FAERS Safety Report 4648579-9 (Version None)
Quarter: 2005Q2

REPORT INFORMATION
  Report Type: 
  Country: None (occurrence: None)
  Receive Date: 20050429
  Receipt Date: 20050419
  Transmission Date: 20051028
  Serious: Yes (Death)
  Sender: FDA-Public Use
  Company Number: GB-BRISTOL-MYERS SQUIBB COMPANY-12939120

PATIENT
  Sex: Male

DRUGS (12)
  1. NYSTATIN [Suspect]
  2. SPIRIVA [Suspect]
  3. COMBIVENT [Suspect]
  4. CITALOPRAM HYDROBROMIDE [Suspect]
  5. LOSARTAN POTASSIUM [Suspect]
  6. MOMETASONE FUROATE [Suspect]
  7. OXYGEN [Suspect]
  8. PHOLCODINE [Suspect]
  9. SALBUTAMOL [Suspect]
  10. SERETIDE [Suspect]
  11. XALATAN [Suspect]
  12. ZOPICLONE [Suspect]

REACTIONS (1)
  - CHRONIC OBSTRUCTIVE AIRWAYS DISEASE EXACERBATED [None]
